FAERS Safety Report 6761944-9 (Version None)
Quarter: 2010Q2

REPORT INFORMATION
  Report Type: 
  Country: None (occurrence: None)
  Receive Date: 20100609
  Receipt Date: 20090817
  Transmission Date: 20101027
  Serious: No
  Sender: FDA-Public Use
  Company Number: US-KINGPHARMUSA00001-K200900994

PATIENT
  Sex: Female
  Weight: 56.689 kg

DRUGS (1)
  1. CORTISPORIN [Suspect]
     Indication: EAR INFECTION
     Dosage: 4 GTT, QID
     Route: 001
     Dates: start: 20080801, end: 20080801

REACTIONS (2)
  - APPLICATION SITE PRURITUS [None]
  - APPLICATION SITE SWELLING [None]
